FAERS Safety Report 8360836-1 (Version None)
Quarter: 2012Q2

REPORT INFORMATION
  Report Type: 
  Country: None (occurrence: None)
  Receive Date: 20120515
  Receipt Date: 20120509
  Transmission Date: 20120825
  Serious: Yes (Life-Threatening, Hospitalization, Other)
  Sender: FDA-Public Use
  Company Number: CA-GENZYME-THYM-1003229

PATIENT
  Sex: Male
  Weight: 79 kg

DRUGS (12)
  1. THYMOGLOBULIN [Suspect]
     Dosage: 2 MG/KG, QD
     Route: 042
     Dates: start: 20111101, end: 20111101
  2. RITUXIMAB [Concomitant]
     Indication: PRODUCT USED FOR UNKNOWN INDICATION
     Dosage: 700 MG, 1X/W
     Route: 042
  3. AVEENO [Concomitant]
     Indication: PRODUCT USED FOR UNKNOWN INDICATION
     Dosage: UNK
     Route: 061
  4. SEPTRA [Concomitant]
     Indication: PRODUCT USED FOR UNKNOWN INDICATION
     Dosage: 1 DF, 3X/W
  5. RISEDRONATE SODIUM [Concomitant]
     Indication: PRODUCT USED FOR UNKNOWN INDICATION
     Dosage: 35 MG, 1X/W
     Route: 048
  6. DIMENHYDRINATE [Concomitant]
     Indication: PRODUCT USED FOR UNKNOWN INDICATION
     Dosage: UNK
     Route: 065
  7. MAGNESIUM OXIDE [Concomitant]
     Indication: PRODUCT USED FOR UNKNOWN INDICATION
     Dosage: 420 MG, QD
     Route: 048
  8. MAGNESIUM OXIDE [Concomitant]
     Dosage: 840 MG, BID
     Route: 048
  9. THYMOGLOBULIN [Suspect]
     Indication: PROPHYLAXIS AGAINST GRAFT VERSUS HOST DISEASE
     Dosage: 0.5 MG/KG, QD
     Route: 042
     Dates: start: 20111031, end: 20111031
  10. CYCLOSPORINE [Concomitant]
     Dosage: 125 MG/DAY, BID
     Route: 048
  11. CYCLOSPORINE [Concomitant]
     Indication: PRODUCT USED FOR UNKNOWN INDICATION
     Dosage: 125 MG, BID
     Route: 048
  12. THYMOGLOBULIN [Suspect]
     Dosage: 2 MG/KG, QD
     Route: 042
     Dates: start: 20111103, end: 20111103

REACTIONS (8)
  - DEAFNESS [None]
  - POST TRANSPLANT LYMPHOPROLIFERATIVE DISORDER [None]
  - CANDIDIASIS [None]
  - PLATELET COUNT DECREASED [None]
  - SEPSIS [None]
  - CYSTITIS HAEMORRHAGIC [None]
  - EPSTEIN-BARR VIRUS INFECTION [None]
  - RASH [None]
